FAERS Safety Report 11270911 (Version 1)
Quarter: 2015Q3

REPORT INFORMATION
  Report Type: Spontaneous
  Country: AU (occurrence: US)
  Receive Date: 20150714
  Receipt Date: 20150714
  Transmission Date: 20151125
  Serious: No
  Sender: FDA-Public Use
  Company Number: AU-BAYER-2015-374212

PATIENT
  Sex: Female

DRUGS (1)
  1. YAZ [Suspect]
     Active Substance: DROSPIRENONE\ETHINYL ESTRADIOL
     Indication: CONTRACEPTION

REACTIONS (5)
  - Vaginal haemorrhage [None]
  - Premenstrual syndrome [None]
  - Abdominal pain lower [Recovering/Resolving]
  - Premenstrual cramps [None]
  - Product use issue [None]
